FAERS Safety Report 8421528-3 (Version None)
Quarter: 2012Q2

REPORT INFORMATION
  Report Type: 
  Country: None (occurrence: None)
  Receive Date: 20120601
  Receipt Date: 20120516
  Transmission Date: 20120825
  Serious: Yes (Disabling)
  Sender: FDA-Public Use
  Company Number: DKLU1081336

PATIENT
  Age: 74 Year
  Sex: Male

DRUGS (6)
  1. TEMSIROLIMUS [Suspect]
     Indication: GLIOBLASTOMA
     Dosage: 25 MG MILLIGRAM(S), 1 IN 1 WK, OTHERWISE SPECIFIED)
     Route: 042
     Dates: start: 20120412
  2. ESCITALOPRAM [Concomitant]
  3. PREDNISOLONE [Concomitant]
  4. ONFI [Suspect]
     Indication: ANXIETY
     Dosage: 5 MG MILLIGRAM(S), ORAL
     Route: 048
     Dates: start: 20120320, end: 20120502
  5. KEPPRA [Concomitant]
  6. RABEPRAZOLE SODIUM [Concomitant]

REACTIONS (1)
  - DEPRESSED LEVEL OF CONSCIOUSNESS [None]
